FAERS Safety Report 17879843 (Version 1)
Quarter: 2020Q2

REPORT INFORMATION
  Report Type: Spontaneous
  Country: CA (occurrence: CA)
  Receive Date: 20200610
  Receipt Date: 20200610
  Transmission Date: 20200714
  Serious: Yes (Other)
  Sender: FDA-Public Use
  Company Number: CA-OCTA-HAPL00720CA

PATIENT
  Sex: Male

DRUGS (2)
  1. TRANEXAMIC ACID. [Concomitant]
     Active Substance: TRANEXAMIC ACID
     Indication: IMMUNE TOLERANCE INDUCTION
  2. HUMAN COAGULATION FACTOR VIII/HUMAN VON WILLEBRAND FACTOR [Suspect]
     Active Substance: HUMAN COAGULATION FACTOR VIII/VON WILLEBRAND FACTOR COMPLEX
     Indication: IMMUNE TOLERANCE INDUCTION
     Route: 042

REACTIONS (8)
  - Paraesthesia oral [Not Recovered/Not Resolved]
  - Product use in unapproved indication [Unknown]
  - Urticaria [Not Recovered/Not Resolved]
  - Anaphylactic reaction [Not Recovered/Not Resolved]
  - Hypotension [Not Recovered/Not Resolved]
  - Dyspnoea [Not Recovered/Not Resolved]
  - Drug ineffective for unapproved indication [Unknown]
  - Von Willebrand^s factor inhibition [Not Recovered/Not Resolved]
